FAERS Safety Report 18600152 (Version 1)
Quarter: 2020Q4

REPORT INFORMATION
  Report Type: Spontaneous
  Country: CH (occurrence: CH)
  Receive Date: 20201210
  Receipt Date: 20201210
  Transmission Date: 20210114
  Serious: Yes (Other)
  Sender: FDA-Public Use
  Company Number: NVSC2020CH289372

PATIENT
  Sex: Female

DRUGS (8)
  1. SOLU-MEDROL [Concomitant]
     Active Substance: METHYLPREDNISOLONE SODIUM SUCCINATE
     Indication: CYTOKINE RELEASE SYNDROME
     Dosage: 80 MG
     Route: 065
  2. PREDNISONE. [Concomitant]
     Active Substance: PREDNISONE
     Indication: COLITIS
     Dosage: 80 MG
     Route: 065
     Dates: start: 20200603
  3. ELTROXIN [Concomitant]
     Active Substance: LEVOTHYROXINE
     Indication: HYPERTHYROIDISM
  4. CORTIMENT [Concomitant]
     Indication: COLITIS
     Dosage: 9 MG
     Route: 065
     Dates: start: 20200517, end: 20200916
  5. IPILIMUMAB [Concomitant]
     Active Substance: IPILIMUMAB
     Indication: MALIGNANT MELANOMA
     Dosage: UNK
     Route: 065
     Dates: start: 20200224
  6. ELTROXIN [Concomitant]
     Active Substance: LEVOTHYROXINE
     Indication: METASTATIC MALIGNANT MELANOMA
     Dosage: UNK
     Route: 065
     Dates: start: 20200604
  7. KISQALI [Suspect]
     Active Substance: RIBOCICLIB
     Indication: MALIGNANT MELANOMA
     Dosage: 600 MG
     Route: 065
     Dates: start: 20200703
  8. NIVOLUMAB [Concomitant]
     Active Substance: NIVOLUMAB
     Indication: MALIGNANT MELANOMA
     Dosage: UNK
     Route: 065
     Dates: start: 20200224

REACTIONS (4)
  - Product use in unapproved indication [Unknown]
  - Malignant melanoma [Unknown]
  - Malignant neoplasm progression [Unknown]
  - Lymphopenia [Unknown]
